FAERS Safety Report 6810512-9 (Version None)
Quarter: 2010Q2

REPORT INFORMATION
  Report Type: 
  Country: None (occurrence: None)
  Receive Date: 20100630
  Receipt Date: 20100623
  Transmission Date: 20101027
  Serious: Yes (Hospitalization, Other)
  Sender: FDA-Public Use
  Company Number: US-PFIZER INC-2010079555

PATIENT
  Sex: Female

DRUGS (4)
  1. GLUCOTROL [Suspect]
     Indication: TYPE 2 DIABETES MELLITUS
     Dosage: UNK
     Route: 048
     Dates: start: 19720101
  2. GLUCOTROL [Suspect]
     Dosage: 2.5 MG, UNK
     Route: 048
  3. TOPROL-XL [Concomitant]
     Dosage: UNK
  4. COZAAR [Concomitant]
     Dosage: UNK

REACTIONS (3)
  - BLOOD GLUCOSE DECREASED [None]
  - BLOOD GLUCOSE INCREASED [None]
  - PANCREATITIS [None]
